FAERS Safety Report 20741780 (Version 1)
Quarter: 2022Q2

REPORT INFORMATION
  Report Type: Other
  Country: US (occurrence: None)
  Receive Date: 20220423
  Receipt Date: 20220423
  Transmission Date: 20220721
  Serious: Yes (Other)
  Sender: FDA-Public Use
  Company Number: US-ROCHE-2880377

PATIENT
  Age: 30 Year

DRUGS (1)
  1. OCRELIZUMAB [Suspect]
     Active Substance: OCRELIZUMAB
     Indication: Multiple sclerosis
     Dosage: AND THIS WAS THE LAST DOSE OF OCRELIZUMAB.
     Route: 065
     Dates: start: 20210510

REACTIONS (3)
  - Wound infection [Recovered/Resolved]
  - Erectile dysfunction [Recovered/Resolved]
  - COVID-19 [Recovered/Resolved]

NARRATIVE: CASE EVENT DATE: 20210528
